FAERS Safety Report 10410265 (Version 2)
Quarter: 2014Q3

REPORT INFORMATION
  Report Type: Report from Study
  Country: US (occurrence: US)
  Receive Date: 20140826
  Receipt Date: 20140826
  Transmission Date: 20150326
  Serious: Yes (Hospitalization, Other)
  Sender: FDA-Public Use
  Company Number: US-SA-2014SA035288

PATIENT
  Age: 58 Year
  Sex: Female

DRUGS (1)
  1. AUBAGIO [Suspect]
     Active Substance: TERIFLUNOMIDE
     Indication: MULTIPLE SCLEROSIS
     Route: 048
     Dates: start: 20131013, end: 20140528

REACTIONS (8)
  - Neurogenic bladder [Unknown]
  - Decreased appetite [Unknown]
  - Drug dose omission [Unknown]
  - Urinary tract infection [Unknown]
  - Diarrhoea [Unknown]
  - Cardiac failure chronic [Unknown]
  - Bladder spasm [Unknown]
  - Weight decreased [Unknown]

NARRATIVE: CASE EVENT DATE: 201405
